FAERS Safety Report 4430932-X (Version None)
Quarter: 2004Q3

REPORT INFORMATION
  Report Type: 
  Country: None (occurrence: None)
  Receive Date: 20040823
  Receipt Date: 20040817
  Transmission Date: 20050211
  Serious: Yes (Hospitalization)
  Sender: FDA-Public Use
  Company Number: NO-MERCK-0408NOR00013

PATIENT
  Age: 93 Year
  Sex: Female

DRUGS (4)
  1. ACETAMINOPHEN [Concomitant]
     Indication: ARTHRALGIA
     Route: 065
     Dates: start: 20030929
  2. LACTULOSE [Concomitant]
     Indication: CONSTIPATION
     Route: 048
     Dates: start: 20040310
  3. MIANSERIN HYDROCHLORIDE [Concomitant]
     Indication: INSOMNIA
     Route: 048
     Dates: start: 20001220
  4. VIOXX [Suspect]
     Indication: OSTEOARTHRITIS
     Route: 048
     Dates: start: 20040608, end: 20040730

REACTIONS (4)
  - ABDOMINAL DISCOMFORT [None]
  - FAECES DISCOLOURED [None]
  - GASTRIC ULCER [None]
  - HELICOBACTER INFECTION [None]
